FAERS Safety Report 4353179-4 (Version None)
Quarter: 2004Q2

REPORT INFORMATION
  Report Type: 
  Country: None (occurrence: None)
  Receive Date: 20040429
  Receipt Date: 20040422
  Transmission Date: 20050107
  Serious: Yes (Hospitalization)
  Sender: FDA-Public Use
  Company Number: US-JNJFOC-20040401746

PATIENT
  Age: 80 Year
  Sex: Female

DRUGS (3)
  1. DURAGESIC [Suspect]
     Indication: PAIN
     Dosage: SEE IMAGE
     Route: 062
     Dates: start: 20030101, end: 20040301
  2. DURAGESIC [Suspect]
     Indication: PAIN
     Dosage: SEE IMAGE
     Route: 062
     Dates: start: 20040301
  3. DURAGESIC [Suspect]

REACTIONS (7)
  - CONFUSIONAL STATE [None]
  - DRUG TOXICITY [None]
  - DYSPNOEA [None]
  - HYPOTENSION [None]
  - LETHARGY [None]
  - MEDICATION ERROR [None]
  - OVERDOSE [None]
